FAERS Safety Report 6456286-5 (Version None)
Quarter: 2009Q4

REPORT INFORMATION
  Report Type: 
  Country: None (occurrence: None)
  Receive Date: 20091125
  Receipt Date: 20091113
  Transmission Date: 20100525
  Serious: Yes (Other)
  Sender: FDA-Public Use
  Company Number: US-ELI_LILLY_AND_COMPANY-US200911003698

PATIENT
  Age: 63 Year
  Sex: Female

DRUGS (8)
  1. EVISTA [Suspect]
     Indication: OSTEOPOROSIS
     Dosage: 60 MG, DAILY (1/D)
     Route: 065
     Dates: start: 19990101, end: 20080101
  2. EVISTA [Suspect]
     Dosage: 60 MG, DAILY (1/D)
     Route: 065
     Dates: start: 20090101, end: 20091106
  3. CRESTOR [Concomitant]
     Indication: BLOOD CHOLESTEROL
     Dosage: 10 MG, UNKNOWN
     Route: 065
  4. PLAVIX [Concomitant]
     Indication: BLOOD DISORDER
     Dosage: 75 MG, UNKNOWN
     Route: 065
  5. INDAPAMIDE [Concomitant]
     Indication: BLOOD PRESSURE
     Dosage: 1.25 MG, UNKNOWN
     Route: 065
  6. VITAMIN A+D [Concomitant]
     Dosage: 400 IU, UNKNOWN
     Route: 065
  7. CITRACAL PLUS [Concomitant]
     Dosage: UNK, UNKNOWN
     Route: 065
  8. MAGNESIUM [Concomitant]
     Dosage: UNK, UNKNOWN
     Route: 065

REACTIONS (4)
  - BREAST CALCIFICATIONS [None]
  - BREAST CYST [None]
  - FALL [None]
  - POLYP COLORECTAL [None]
